FAERS Safety Report 23815263 (Version 1)
Quarter: 2024Q2

REPORT INFORMATION
  Report Type: Spontaneous
  Country: RU (occurrence: RU)
  Receive Date: 20240503
  Receipt Date: 20240503
  Transmission Date: 20240715
  Serious: Yes (Other)
  Sender: FDA-Public Use
  Company Number: None

PATIENT
  Age: 10 Year
  Sex: Male
  Weight: 28 kg

DRUGS (1)
  1. ORKAMBI [Suspect]
     Active Substance: IVACAFTOR\LUMACAFTOR
     Indication: Cystic fibrosis
     Dosage: 2 DOSAGE FORM (TABLETS), QD
     Route: 048
     Dates: start: 202209

REACTIONS (4)
  - Cataract [Not Recovered/Not Resolved]
  - Myopia [Unknown]
  - Astigmatism [Unknown]
  - Sweat test abnormal [Unknown]
